FAERS Safety Report 22340790 (Version 1)
Quarter: 2023Q2

REPORT INFORMATION
  Report Type: Spontaneous
  Country: JP (occurrence: None)
  Receive Date: 20230518
  Receipt Date: 20230518
  Transmission Date: 20230721
  Serious: Yes (Other)
  Sender: FDA-Public Use
  Company Number: 2023A111072

PATIENT
  Age: 43 Year
  Sex: Female

DRUGS (2)
  1. SYMBICORT [Suspect]
     Active Substance: BUDESONIDE\FORMOTEROL FUMARATE DIHYDRATE
     Indication: Asthma
     Dosage: DOSE UNKNOWN
     Route: 055
  2. PULMICORT TURBUHALER [Suspect]
     Active Substance: BUDESONIDE
     Indication: Asthma
     Dosage: DOSE UNKNOWN
     Route: 055

REACTIONS (18)
  - Joint dislocation [Unknown]
  - Ehlers-Danlos syndrome [Unknown]
  - Attention deficit hyperactivity disorder [Unknown]
  - Autism spectrum disorder [Unknown]
  - Hypersomnia [Unknown]
  - Irritable bowel syndrome [Unknown]
  - Gastrooesophageal reflux disease [Unknown]
  - Uterine leiomyoma [Unknown]
  - Perennial allergy [Unknown]
  - Joint hyperextension [Unknown]
  - Migraine [Unknown]
  - Premenstrual syndrome [Unknown]
  - Post viral fatigue syndrome [Unknown]
  - Chronic fatigue syndrome [Unknown]
  - Depression [Unknown]
  - Sleep disorder [Unknown]
  - Headache [Unknown]
  - Depressive symptom [Unknown]
